FAERS Safety Report 23042569 (Version 2)
Quarter: 2024Q1

REPORT INFORMATION
  Report Type: Report from Study
  Country: CA (occurrence: CA)
  Receive Date: 20231009
  Receipt Date: 20240104
  Transmission Date: 20240409
  Serious: Yes (Other)
  Sender: FDA-Public Use
  Company Number: CA-ABBVIE-5362289

PATIENT
  Age: 63 Year
  Sex: Male
  Weight: 81 kg

DRUGS (9)
  1. UPADACITINIB [Suspect]
     Active Substance: UPADACITINIB
     Indication: Dermatitis atopic
     Route: 048
     Dates: start: 20230609, end: 20231102
  2. DALACIN [Concomitant]
     Indication: Acne
     Dosage: LOTION 1%- 1 APPLICATION
     Route: 061
     Dates: start: 20230720, end: 20230808
  3. DESOCORT [Concomitant]
     Indication: Dermatitis atopic
     Dosage: 1 APPLICATION
     Route: 061
     Dates: start: 20211109, end: 20230708
  4. DESOCORT [Concomitant]
     Indication: Dermatitis atopic
     Dosage: TIME INTERVAL: AS NECESSARY: 1 APPLICATION
     Route: 061
     Dates: start: 202306
  5. TOPICORT [Concomitant]
     Active Substance: DESOXIMETASONE
     Indication: Dermatitis atopic
     Dosage: 0.25%?1 APPLICATION
     Route: 061
     Dates: start: 20220321, end: 20230708
  6. TOPICORT [Concomitant]
     Active Substance: DESOXIMETASONE
     Indication: Dermatitis atopic
     Dosage: TIME INTERVAL: AS NECESSARY: 1 APPLICATION?0.25%
     Route: 061
     Dates: start: 20230622
  7. PROTOPIC [Concomitant]
     Active Substance: TACROLIMUS
     Indication: Dermatitis atopic
     Dosage: 1 APPLICATION
     Route: 061
     Dates: start: 20220328, end: 20230708
  8. PROTOPIC [Concomitant]
     Active Substance: TACROLIMUS
     Indication: Dermatitis atopic
     Dosage: TIME INTERVAL: AS NECESSARY: 1 APPLICATION
     Route: 061
     Dates: start: 202306
  9. VITAMIN D [Concomitant]
     Active Substance: VITAMIN D NOS
     Indication: Prophylaxis
     Route: 048
     Dates: start: 201606

REACTIONS (3)
  - Renal failure [Not Recovered/Not Resolved]
  - Fatigue [Not Recovered/Not Resolved]
  - Tinea versicolour [Not Recovered/Not Resolved]

NARRATIVE: CASE EVENT DATE: 20230725
